FAERS Safety Report 7760052-8 (Version None)
Quarter: 2011Q3

REPORT INFORMATION
  Report Type: 
  Country: None (occurrence: None)
  Receive Date: 20110919
  Receipt Date: 20110908
  Transmission Date: 20111222
  Serious: Yes (Other)
  Sender: FDA-Public Use
  Company Number: CA-JNJFOC-20110905040

PATIENT
  Sex: Female
  Weight: 65.5 kg

DRUGS (1)
  1. REMICADE [Suspect]
     Indication: COLITIS ULCERATIVE
     Dosage: 18TH TO DATE
     Route: 042

REACTIONS (2)
  - VISION BLURRED [None]
  - LENS DISORDER [None]
